FAERS Safety Report 17031857 (Version 1)
Quarter: 2019Q4

REPORT INFORMATION
  Report Type: Spontaneous
  Country: US (occurrence: US)
  Receive Date: 20191114
  Receipt Date: 20191114
  Transmission Date: 20200122
  Serious: No
  Sender: FDA-Public Use
  Company Number: US-GLAXOSMITHKLINE-US2019202765

PATIENT
  Age: 76 Year
  Sex: Male

DRUGS (1)
  1. SORIATANE [Suspect]
     Active Substance: ACITRETIN
     Indication: LIMB DISCOMFORT
     Dosage: UNK
     Route: 048
     Dates: start: 20191028

REACTIONS (5)
  - Lip swelling [Recovered/Resolved]
  - Drug ineffective [Unknown]
  - Chapped lips [Unknown]
  - Urine odour abnormal [Recovered/Resolved]
  - Product use in unapproved indication [Unknown]

NARRATIVE: CASE EVENT DATE: 201910
